FAERS Safety Report 18830455 (Version 1)
Quarter: 2021Q1

REPORT INFORMATION
  Report Type: Spontaneous
  Country: US (occurrence: US)
  Receive Date: 20210202
  Receipt Date: 20210202
  Transmission Date: 20210419
  Serious: Yes (Hospitalization)
  Sender: FDA-Public Use
  Company Number: None

PATIENT
  Age: 89 Year
  Sex: Male
  Weight: 82.8 kg

DRUGS (1)
  1. CASIRIVIMAB AND IMDEVIMAB [Suspect]
     Active Substance: CASIRIVIMAB\IMDEVIMAB
     Indication: COVID-19
     Dates: start: 20210129, end: 20210129

REACTIONS (8)
  - Hypoxia [None]
  - Fibrin D dimer increased [None]
  - Tachycardia [None]
  - Lung opacity [None]
  - Dyspnoea [None]
  - Infusion related reaction [None]
  - Type I hypersensitivity [None]
  - Chills [None]

NARRATIVE: CASE EVENT DATE: 20210129
